FAERS Safety Report 17387048 (Version 4)
Quarter: 2020Q2

REPORT INFORMATION
  Report Type: Report from Study
  Country: CO (occurrence: CO)
  Receive Date: 20200206
  Receipt Date: 20200418
  Transmission Date: 20200713
  Serious: Yes (Other)
  Sender: FDA-Public Use
  Company Number: CO-INCYTE CORPORATION-2020IN001147

PATIENT

DRUGS (6)
  1. LOSARTAN. [Suspect]
     Active Substance: LOSARTAN
     Indication: HYPERTENSION
     Dosage: 50 MG, Q12H
     Route: 048
  2. HYDROCHLOROTHIAZIDE. [Suspect]
     Active Substance: HYDROCHLOROTHIAZIDE
     Indication: HYPERTENSION
     Dosage: 20 MG, QD
     Route: 048
  3. CHLOROTHIAZIDE. [Concomitant]
     Active Substance: CHLOROTHIAZIDE
     Indication: HYPERTENSION
     Dosage: UNK
     Route: 048
  4. AMLODIPINE [Suspect]
     Active Substance: AMLODIPINE BESYLATE
     Indication: HYPERTENSION
     Dosage: 10 MG, QD
     Route: 048
  5. JAKAVI [Suspect]
     Active Substance: RUXOLITINIB
     Indication: MYELOFIBROSIS
     Dosage: 20 MG, Q12H
     Route: 048
     Dates: start: 2017
  6. ATORVASTATIN [Suspect]
     Active Substance: ATORVASTATIN
     Indication: BLOOD CHOLESTEROL INCREASED
     Dosage: UNK, QD
     Route: 048

REACTIONS (10)
  - Insomnia [Recovering/Resolving]
  - Hyperhidrosis [Not Recovered/Not Resolved]
  - Aspiration bone marrow abnormal [Unknown]
  - Diarrhoea [Recovered/Resolved]
  - Laboratory test abnormal [Unknown]
  - Ill-defined disorder [Unknown]
  - Inappropriate schedule of product administration [Unknown]
  - Epistaxis [Unknown]
  - Malaise [Unknown]
  - Asthenia [Recovering/Resolving]

NARRATIVE: CASE EVENT DATE: 201911
